FAERS Safety Report 23951146 (Version 1)
Quarter: 2024Q2

REPORT INFORMATION
  Report Type: Spontaneous
  Country: CN (occurrence: None)
  Receive Date: 20240607
  Receipt Date: 20240607
  Transmission Date: 20240715
  Serious: Yes (Other)
  Sender: FDA-Public Use
  Company Number: 2024A129567

PATIENT
  Age: 89 Year
  Sex: Male

DRUGS (3)
  1. BUDESONIDE [Suspect]
     Active Substance: BUDESONIDE
     Indication: Chronic obstructive pulmonary disease
     Route: 055
     Dates: start: 20240312, end: 20240405
  2. PIPERACILLIN AND TAZOBACTAM [Suspect]
     Active Substance: PIPERACILLIN SODIUM\TAZOBACTAM SODIUM
     Indication: Chronic obstructive pulmonary disease
     Dosage: 4.5GR THREE TIMES A DAY
     Route: 041
     Dates: start: 20240312, end: 20240320
  3. PIPERACILLIN AND TAZOBACTAM [Suspect]
     Active Substance: PIPERACILLIN SODIUM\TAZOBACTAM SODIUM
     Indication: Infection
     Dosage: 4.5GR THREE TIMES A DAY
     Route: 041
     Dates: start: 20240312, end: 20240320

REACTIONS (1)
  - Respiratory tract infection fungal [Recovering/Resolving]

NARRATIVE: CASE EVENT DATE: 20240316
